FAERS Safety Report 6503582-9 (Version None)
Quarter: 2009Q4

REPORT INFORMATION
  Report Type: 
  Country: None (occurrence: None)
  Receive Date: 20091217
  Receipt Date: 20091209
  Transmission Date: 20100525
  Serious: Yes (Other)
  Sender: FDA-Public Use
  Company Number: US-AMGEN-QUU368675

PATIENT
  Sex: Male
  Weight: 105.8 kg

DRUGS (26)
  1. ENBREL [Suspect]
     Indication: RHEUMATOID ARTHRITIS
     Route: 058
     Dates: start: 19990101
  2. NABUMETONE [Concomitant]
     Dates: start: 19971020
  3. FLUOXETINE [Concomitant]
     Dates: start: 19971020
  4. UNSPECIFIED ANTINEOPLASTIC AGENT [Concomitant]
  5. CLONAZEPAM [Concomitant]
     Route: 048
     Dates: start: 20030101
  6. METHOTREXATE [Concomitant]
  7. NEORAL [Concomitant]
     Dates: start: 19971001
  8. IMURAN [Concomitant]
  9. BORAGE OIL [Concomitant]
     Route: 048
  10. ZYRTEC [Concomitant]
     Route: 048
  11. DARVOCET-N 100 [Concomitant]
     Route: 048
  12. NEXIUM [Concomitant]
     Route: 048
  13. FOLIC ACID [Concomitant]
     Route: 048
  14. ANUSOL HC [Concomitant]
     Route: 054
  15. LAC-HYDRIN [Concomitant]
     Route: 061
  16. LOPROX [Concomitant]
     Route: 061
  17. MULTI-VITAMINS [Concomitant]
     Route: 048
  18. PROZAC [Concomitant]
     Route: 048
  19. NABUMETONE [Concomitant]
     Route: 048
  20. TOPICORTE [Concomitant]
  21. VITAMIN B COMPLEX CAP [Concomitant]
     Route: 048
  22. ASCORBIC ACID [Concomitant]
     Route: 048
  23. VITAMIN E [Concomitant]
     Route: 048
  24. ZINC [Concomitant]
     Route: 048
  25. ASPIRIN [Concomitant]
     Route: 048
  26. HYZAAR [Concomitant]
     Route: 048

REACTIONS (16)
  - ABDOMINAL HERNIA [None]
  - BLOOD GLUCOSE INCREASED [None]
  - CHOLELITHIASIS [None]
  - COLON CANCER [None]
  - EMPHYSEMA [None]
  - FACET JOINT SYNDROME [None]
  - INTERVERTEBRAL DISC PROTRUSION [None]
  - IRON DEFICIENCY [None]
  - LUMBAR SPINAL STENOSIS [None]
  - METASTASES TO LIVER [None]
  - NERVE INJURY [None]
  - RECTAL ABSCESS [None]
  - RENAL CYST [None]
  - SYNCOPE [None]
  - TOOTH ABSCESS [None]
  - WOUND DEHISCENCE [None]
